FAERS Safety Report 8539718-8 (Version None)
Quarter: 2012Q3

REPORT INFORMATION
  Report Type: 
  Country: None (occurrence: None)
  Receive Date: 20120726
  Receipt Date: 20120119
  Transmission Date: 20120928
  Serious: No
  Sender: FDA-Public Use
  Company Number: US-ASTRAZENECA-2006UW17760

PATIENT
  Age: 70 Year
  Sex: Female

DRUGS (1)
  1. SEROQUEL [Suspect]
     Route: 048

REACTIONS (8)
  - PANIC DISORDER [None]
  - STRESS [None]
  - PAIN [None]
  - MALAISE [None]
  - FALL [None]
  - ANXIETY [None]
  - NERVOUS SYSTEM DISORDER [None]
  - HERPES VIRUS INFECTION [None]
